FAERS Safety Report 23864561 (Version 3)
Quarter: 2024Q4

REPORT INFORMATION
  Report Type: Spontaneous
  Country: US (occurrence: US)
  Receive Date: 20240516
  Receipt Date: 20241128
  Transmission Date: 20250114
  Serious: No
  Sender: SANOFI AVENTIS
  Company Number: US-SA-SAC20240511000078

PATIENT
  Age: 20 Year
  Sex: Female

DRUGS (2)
  1. DUPIXENT [Suspect]
     Active Substance: DUPILUMAB
     Indication: Dermatitis atopic
     Dosage: 300 MG, QOW
     Route: 058
     Dates: start: 202401
  2. VTAMA [Concomitant]
     Active Substance: TAPINAROF

REACTIONS (7)
  - Alopecia [Not Recovered/Not Resolved]
  - Eye infection staphylococcal [Unknown]
  - Skin hypopigmentation [Unknown]
  - Dermatitis atopic [Unknown]
  - Eczema [Unknown]
  - Rash [Unknown]
  - Therapeutic response decreased [Unknown]

NARRATIVE: CASE EVENT DATE: 20240101
